FAERS Safety Report 17671316 (Version 1)
Quarter: 2020Q2

REPORT INFORMATION
  Report Type: Spontaneous
  Country: FR (occurrence: FR)
  Receive Date: 20200415
  Receipt Date: 20200415
  Transmission Date: 20200713
  Serious: Yes (Hospitalization)
  Sender: FDA-Public Use
  Company Number: US-ALLERGAN-2015351US

PATIENT
  Sex: Male

DRUGS (6)
  1. CLOZAPINE. [Suspect]
     Active Substance: CLOZAPINE
     Indication: AUTISM SPECTRUM DISORDER
     Dosage: UNK
     Route: 048
     Dates: start: 20190814
  2. CIRCADIN [Concomitant]
     Active Substance: MELATONIN
     Dosage: 3 DF, QD
     Route: 048
  3. TRIPTORELIN PAMOATE - BP [Suspect]
     Active Substance: TRIPTORELIN PAMOATE
     Indication: EXHIBITIONISM
     Dosage: 1 DF, Q3MONTHS
     Route: 030
     Dates: start: 20190705, end: 20190924
  4. THERALEN [Concomitant]
     Active Substance: TRIMEPRAZINE
     Dosage: UNK
     Route: 048
  5. TERCIAN [Suspect]
     Active Substance: CYAMEMAZINE
     Indication: AGITATION
     Dosage: 50 MG, PRN
     Route: 048
     Dates: start: 2018
  6. ACEBUTOLOL [Concomitant]
     Active Substance: ACEBUTOLOL
     Dosage: 400 MG, QD
     Route: 048

REACTIONS (1)
  - Priapism [Recovered/Resolved]

NARRATIVE: CASE EVENT DATE: 20191025
